FAERS Safety Report 5331326-5 (Version None)
Quarter: 2007Q2

REPORT INFORMATION
  Report Type: 
  Country: None (occurrence: None)
  Receive Date: 20070301
  Receipt Date: 20060626
  Transmission Date: 20071010
  Serious: Yes (Other)
  Sender: FDA-Public Use
  Company Number: 2776

PATIENT
  Age: 15 Year
  Sex: Male

DRUGS (1)
  1. AMNESTEEM [Suspect]
     Indication: ACNE
     Dosage: 40 MG, QD, PO
     Route: 048
     Dates: start: 20060501, end: 20060531

REACTIONS (1)
  - DEAFNESS [None]
